FAERS Safety Report 6138520-4 (Version None)
Quarter: 2009Q1

REPORT INFORMATION
  Report Type: 
  Country: None (occurrence: None)
  Receive Date: 20090327
  Receipt Date: 20090327
  Transmission Date: 20090719
  Serious: No
  Sender: FDA-Public Use
  Company Number: None

PATIENT
  Age: 61 Year
  Sex: Female

DRUGS (4)
  1. ENOXAPARIN SODIUM [Suspect]
     Indication: DEEP VEIN THROMBOSIS
     Dosage: 40MG DAILY; 60 MG EVERY 12 HOURS
     Dates: start: 20090303, end: 20090310
  2. ENOXAPARIN SODIUM [Suspect]
     Indication: THROMBOSIS PROPHYLAXIS
     Dosage: 40MG DAILY; 60 MG EVERY 12 HOURS
     Dates: start: 20090303, end: 20090310
  3. ENOXAPARIN SODIUM [Suspect]
     Indication: DEEP VEIN THROMBOSIS
     Dosage: 40MG DAILY; 60 MG EVERY 12 HOURS
     Dates: start: 20090312, end: 20090322
  4. ENOXAPARIN SODIUM [Suspect]
     Indication: THROMBOSIS PROPHYLAXIS
     Dosage: 40MG DAILY; 60 MG EVERY 12 HOURS
     Dates: start: 20090312, end: 20090322

REACTIONS (1)
  - PLATELET COUNT DECREASED [None]
